FAERS Safety Report 12867395 (Version 3)
Quarter: 2017Q1

REPORT INFORMATION
  Report Type: Report from Study
  Country: None (occurrence: BR)
  Receive Date: 20161020
  Receipt Date: 20170118
  Transmission Date: 20170428
  Serious: Yes (Disabling, Other)
  Sender: FDA-Public Use
  Company Number: BR-ABBVIE-16K-020-1756256-00

PATIENT
  Age: 54 Year
  Sex: Male
  Weight: 57 kg

DRUGS (1)
  1. HUMIRA [Suspect]
     Active Substance: ADALIMUMAB
     Indication: ANKYLOSING SPONDYLITIS
     Route: 058
     Dates: start: 20150101, end: 20160930

REACTIONS (5)
  - Diabetes mellitus [Unknown]
  - Pain [Unknown]
  - Blindness unilateral [Not Recovered/Not Resolved]
  - Drug effect decreased [Unknown]
  - Arthralgia [Not Recovered/Not Resolved]

NARRATIVE: CASE EVENT DATE: 201605
